FAERS Safety Report 5477809-9 (Version None)
Quarter: 2007Q4

REPORT INFORMATION
  Report Type: 
  Country: None (occurrence: None)
  Receive Date: 20071004
  Receipt Date: 20070924
  Transmission Date: 20080405
  Serious: Yes (Other)
  Sender: FDA-Public Use
  Company Number: US-SANOFI-SYNTHELABO-A03200604506

PATIENT
  Sex: Male
  Weight: 78.5 kg

DRUGS (2)
  1. AMBIEN [Suspect]
     Indication: INSOMNIA
     Route: 048
     Dates: start: 20030619, end: 20040701
  2. TYLENOL SINUS [Concomitant]
     Dosage: UNK
     Route: 048

REACTIONS (25)
  - ABNORMAL BEHAVIOUR [None]
  - AFFECT LABILITY [None]
  - AGITATION [None]
  - ANGER [None]
  - ANXIETY [None]
  - COMMUNICATION DISORDER [None]
  - DELUSION [None]
  - DEPERSONALISATION [None]
  - DEPRESSION [None]
  - DRUG INEFFECTIVE [None]
  - FLATULENCE [None]
  - HALLUCINATION, VISUAL [None]
  - IRRITABILITY [None]
  - LIBIDO INCREASED [None]
  - MEMORY IMPAIRMENT [None]
  - NERVOUSNESS [None]
  - PALPITATIONS [None]
  - PANIC ATTACK [None]
  - PARANOIA [None]
  - PSYCHOTIC DISORDER [None]
  - SELF ESTEEM DECREASED [None]
  - SOMNAMBULISM [None]
  - STOMACH DISCOMFORT [None]
  - TREMOR [None]
  - WEIGHT DECREASED [None]
